FAERS Safety Report 21700055 (Version 1)
Quarter: 2022Q4

REPORT INFORMATION
  Report Type: Report from Study
  Country: DE (occurrence: DE)
  Receive Date: 20221208
  Receipt Date: 20221208
  Transmission Date: 20230113
  Serious: Yes (Hospitalization, Other)
  Sender: FDA-Public Use
  Company Number: DE-TAKEDA-2022TUS094458

PATIENT
  Age: 37 Year
  Sex: Male
  Weight: 83 kg

DRUGS (24)
  1. ADVATE [Suspect]
     Active Substance: ANTIHEMOPHILIC FACTOR, HUMAN RECOMBINANT
     Indication: Prophylaxis
     Dosage: 2000 INTERNATIONAL UNIT
     Route: 042
     Dates: start: 20220706
  2. ADVATE [Suspect]
     Active Substance: ANTIHEMOPHILIC FACTOR, HUMAN RECOMBINANT
     Indication: Prophylaxis
     Dosage: 2000 INTERNATIONAL UNIT
     Route: 042
     Dates: start: 20220706
  3. ADVATE [Suspect]
     Active Substance: ANTIHEMOPHILIC FACTOR, HUMAN RECOMBINANT
     Indication: Prophylaxis
     Dosage: 2000 INTERNATIONAL UNIT
     Route: 042
     Dates: start: 20220706
  4. CLONAZEPAM [Concomitant]
     Active Substance: CLONAZEPAM
     Indication: Major depression
     Dosage: 2 MILLIGRAM, BID
     Route: 065
     Dates: start: 2008, end: 20180218
  5. CLONAZEPAM [Concomitant]
     Active Substance: CLONAZEPAM
     Dosage: 2 MILLIGRAM, BID
     Route: 065
     Dates: start: 20190116
  6. CLONIDINE [Concomitant]
     Active Substance: CLONIDINE
     Indication: Migraine
     Dosage: 150 MILLIGRAM, Q4HR
     Route: 065
     Dates: start: 20180219, end: 20180302
  7. CLONIDINE [Concomitant]
     Active Substance: CLONIDINE
     Indication: Drug dependence
     Dosage: 150 MILLIGRAM, BID
     Route: 065
     Dates: start: 20180303, end: 20200518
  8. CLONIDINE [Concomitant]
     Active Substance: CLONIDINE
     Dosage: 150 MILLIGRAM, BID
     Route: 065
     Dates: start: 2001, end: 20180218
  9. LEVETIRACETAM [Concomitant]
     Active Substance: LEVETIRACETAM
     Indication: Seizure
     Dosage: 100 MILLIGRAM, QD
     Route: 065
     Dates: start: 201806, end: 20180704
  10. LEVETIRACETAM [Concomitant]
     Active Substance: LEVETIRACETAM
     Dosage: 500 MILLIGRAM, QD
     Route: 065
     Dates: start: 20180704
  11. LEVOMEPROMAZINE [Concomitant]
     Active Substance: LEVOMEPROMAZINE
     Indication: Major depression
     Dosage: 100 MILLIGRAM, QD
     Route: 065
     Dates: start: 2010, end: 20180218
  12. LEVOMEPROMAZINE [Concomitant]
     Active Substance: LEVOMEPROMAZINE
     Dosage: 50 MILLIGRAM, QD
     Route: 065
     Dates: start: 201604, end: 20180218
  13. LEVOMEPROMAZINE [Concomitant]
     Active Substance: LEVOMEPROMAZINE
     Dosage: 100 MILLIGRAM, QD
     Route: 065
     Dates: start: 20190116, end: 20200528
  14. METHADONE [Concomitant]
     Active Substance: METHADONE HYDROCHLORIDE
     Indication: Musculoskeletal pain
     Dosage: 10 MILLIGRAM, TID
     Route: 065
     Dates: start: 2010, end: 201501
  15. METHADONE [Concomitant]
     Active Substance: METHADONE HYDROCHLORIDE
     Dosage: 10 MILLIGRAM, TID
     Route: 065
     Dates: start: 20180210, end: 20180220
  16. METHADONE [Concomitant]
     Active Substance: METHADONE HYDROCHLORIDE
     Dosage: 20 MILLIGRAM
     Route: 065
     Dates: start: 20180221
  17. METHADONE [Concomitant]
     Active Substance: METHADONE HYDROCHLORIDE
     Dosage: 10 MILLIGRAM, TID
     Route: 065
     Dates: start: 20180219, end: 20180220
  18. PHENYTOIN [Concomitant]
     Active Substance: PHENYTOIN
     Indication: Seizure
     Dosage: 100 MILLIGRAM, TID
     Route: 065
     Dates: start: 2003, end: 20180704
  19. PHENYTOIN [Concomitant]
     Active Substance: PHENYTOIN
     Dosage: 125 MILLIGRAM, TID
     Route: 065
     Dates: start: 20180704
  20. SERTRALINE [Concomitant]
     Active Substance: SERTRALINE HYDROCHLORIDE
     Indication: Major depression
     Dosage: 50 MILLIGRAM, QD
     Route: 065
     Dates: start: 201501
  21. THIAMINE [Concomitant]
     Active Substance: THIAMINE
     Indication: Major depression
     Dosage: 300 MILLIGRAM, QD
     Route: 065
     Dates: start: 2013, end: 20150731
  22. TRAMADOL [Concomitant]
     Active Substance: TRAMADOL
     Indication: Musculoskeletal pain
     Dosage: 20 DOSAGE FORM, TID
     Route: 065
     Dates: start: 20180303, end: 20190110
  23. TRAMADOL [Concomitant]
     Active Substance: TRAMADOL
     Dosage: 50 MILLIGRAM, TID
     Dates: start: 2012, end: 20180219
  24. TRAMADOL [Concomitant]
     Active Substance: TRAMADOL
     Dosage: 60 DOSAGE FORM, BID
     Route: 065
     Dates: start: 20190116

REACTIONS (1)
  - Drug dependence [Recovered/Resolved]

NARRATIVE: CASE EVENT DATE: 20220707
